FAERS Safety Report 8826776 (Version 1)
Quarter: 2012Q4

REPORT INFORMATION
  Report Type: 
  Country: GB (occurrence: GB)
  Receive Date: 20121005
  Receipt Date: 20121005
  Transmission Date: 20130627
  Serious: Yes (Other)
  Sender: FDA-Public Use
  Company Number: GB-VIIV HEALTHCARE LIMITED-B0833820A

PATIENT

DRUGS (7)
  1. KIVEXA [Suspect]
     Indication: PRODUCT USED FOR UNKNOWN INDICATION
     Route: 065
  2. ATAZANAVIR [Suspect]
     Indication: PRODUCT USED FOR UNKNOWN INDICATION
     Route: 065
  3. RITONAVIR [Suspect]
     Indication: PRODUCT USED FOR UNKNOWN INDICATION
     Route: 065
  4. CAFFEINE [Concomitant]
  5. AMITRIPTYLINE [Concomitant]
  6. CETIRIZINE [Concomitant]
  7. MEFANAMIC ACID [Concomitant]
     Indication: MIGRAINE

REACTIONS (1)
  - Lactic acidosis [Unknown]
